FAERS Safety Report 8797154 (Version 2)
Quarter: 2012Q4

REPORT INFORMATION
  Report Type: 
  Country: CO (occurrence: CO)
  Receive Date: 20120919
  Receipt Date: 20120927
  Transmission Date: 20130627
  Serious: Yes (Death)
  Sender: FDA-Public Use
  Company Number: CO-PFIZER INC-2012230876

PATIENT
  Age: 66 Year
  Sex: Male

DRUGS (1)
  1. SUTENT [Suspect]
     Indication: NEOPLASM
     Dosage: UNK, 1x/day
     Route: 048
     Dates: start: 20091018

REACTIONS (1)
  - Death [Fatal]
